FAERS Safety Report 9468806 (Version 1)
Quarter: 2013Q3

REPORT INFORMATION
  Report Type: Spontaneous
  Country: US (occurrence: None)
  Receive Date: 20130814
  Receipt Date: 20130814
  Transmission Date: 20140515
  Serious: Yes (Hospitalization)
  Sender: FDA-Public Use
  Company Number: TPA2013A07567

PATIENT
  Sex: Male

DRUGS (3)
  1. OSENI [Suspect]
     Indication: DIABETES MELLITUS
     Dates: start: 20130628, end: 20130726
  2. METFORMIN (METFORMIN) [Concomitant]
  3. HCTZ (HYDROCHLOROTHIAZIDE) [Concomitant]

REACTIONS (3)
  - Fluid retention [None]
  - Hypertension [None]
  - Hypotension [None]
